FAERS Safety Report 6147748-9 (Version None)
Quarter: 2009Q2

REPORT INFORMATION
  Report Type: 
  Country: None (occurrence: None)
  Receive Date: 20090408
  Receipt Date: 20090330
  Transmission Date: 20091009
  Serious: Yes (Life-Threatening, Hospitalization)
  Sender: FDA-Public Use
  Company Number: DE-BIOGENIDEC-2009BI001630

PATIENT
  Age: 42 Year
  Sex: Female
  Weight: 65 kg

DRUGS (9)
  1. TYSABRI [Suspect]
     Indication: RELAPSING-REMITTING MULTIPLE SCLEROSIS
     Route: 042
     Dates: start: 20080201, end: 20090115
  2. PANTOPRAZOLE SODIUM [Concomitant]
     Indication: GASTROINTESTINAL DISORDER
     Route: 048
     Dates: start: 20060101
  3. BELOC ZOK MITE [Concomitant]
     Indication: CARDIOVASCULAR DISORDER
     Route: 048
  4. CALCIUM BT [Concomitant]
     Indication: OSTEOPOROSIS
  5. VIGANTOLETTEN [Concomitant]
     Indication: OSTEOPOROSIS
     Route: 048
  6. COTAZYM [Concomitant]
     Indication: PANCREATIC INSUFFICIENCY
     Route: 048
     Dates: start: 20060101
  7. DESMOPRESSIN ACETATE [Concomitant]
     Indication: BLADDER DISORDER
     Dates: start: 20060101
  8. EMSELEX [Concomitant]
     Indication: BLADDER DISORDER
     Route: 048
  9. EUGALAC [Concomitant]
     Indication: CONSTIPATION
     Route: 048

REACTIONS (3)
  - BODY TEMPERATURE INCREASED [None]
  - IMMUNE RECONSTITUTION SYNDROME [None]
  - PROGRESSIVE MULTIFOCAL LEUKOENCEPHALOPATHY [None]
